FAERS Safety Report 17712576 (Version 1)
Quarter: 2020Q2

REPORT INFORMATION
  Report Type: Spontaneous
  Country: US (occurrence: US)
  Receive Date: 20200427
  Receipt Date: 20200427
  Transmission Date: 20200714
  Serious: Yes (Hospitalization)
  Sender: FDA-Public Use
  Company Number: US-PFIZER INC-2020165819

PATIENT
  Age: 85 Year
  Sex: Female
  Weight: 53.52 kg

DRUGS (3)
  1. PREMARIN [Suspect]
     Active Substance: ESTROGENS, CONJUGATED
     Dosage: SIZE OF A PEA ONLY THAT AMOUNT
     Dates: start: 2016
  2. RAMPHIL [Concomitant]
     Indication: BLOOD PRESSURE MEASUREMENT
     Dosage: UNK
  3. PREMARIN [Suspect]
     Active Substance: ESTROGENS, CONJUGATED
     Dosage: UNK (1/2 PEA SIZE 3-4 TIMES A MONTH)

REACTIONS (5)
  - Urinary tract infection [Unknown]
  - Heart rate increased [Unknown]
  - Off label use [Unknown]
  - Expired product administered [Unknown]
  - Intentional product misuse [Unknown]
